FAERS Safety Report 10215159 (Version 1)
Quarter: 2014Q2

REPORT INFORMATION
  Report Type: Spontaneous
  Country: US (occurrence: US)
  Receive Date: 20140603
  Receipt Date: 20140603
  Transmission Date: 20141212
  Serious: Yes (Other)
  Sender: FDA-Public Use
  Company Number: PHHY2014US063996

PATIENT
  Age: 28 Year
  Sex: Female

DRUGS (1)
  1. TOPIRAMATE [Suspect]
     Dates: end: 20130924

REACTIONS (1)
  - Renal tubular acidosis [Recovering/Resolving]
